FAERS Safety Report 4582113-7 (Version None)
Quarter: 2005Q1

REPORT INFORMATION
  Report Type: 
  Country: None (occurrence: None)
  Receive Date: 20050119
  Receipt Date: 20031231
  Transmission Date: 20050727
  Serious: Yes (Other)
  Sender: FDA-Public Use
  Company Number: A03200400010

PATIENT
  Age: 85 Year
  Sex: Male
  Weight: 68.0396 kg

DRUGS (13)
  1. PLAVIX [Suspect]
     Indication: CEREBROVASCULAR ACCIDENT PROPHYLAXIS
     Dosage: 75 MG QD - ORAL
     Route: 048
     Dates: start: 20011101
  2. METOPROLOL [Concomitant]
  3. LEVOTHYROXINE SODIUM [Concomitant]
  4. VALSARTAN [Concomitant]
  5. AMIODARONE HCL [Concomitant]
  6. FOLIC ACID [Concomitant]
  7. SAW PALMETTO [Concomitant]
  8. LUTEINE [Concomitant]
  9. LYCOPEN [Concomitant]
  10. FISH OIL [Concomitant]
  11. VITAMIN C [Concomitant]
  12. MULTI-VITAMINS [Concomitant]
  13. REFRESH EYE DROPS [Concomitant]

REACTIONS (2)
  - RETINAL HAEMORRHAGE [None]
  - VISION BLURRED [None]
